FAERS Safety Report 7072063-9 (Version None)
Quarter: 2010Q4

REPORT INFORMATION
  Report Type: 
  Country: None (occurrence: None)
  Receive Date: 20101029
  Receipt Date: 20101026
  Transmission Date: 20110411
  Serious: Yes (Other)
  Sender: FDA-Public Use
  Company Number: PHHY2010US72358

PATIENT
  Sex: Female

DRUGS (12)
  1. ENABLEX [Suspect]
     Indication: POLLAKIURIA
     Dosage: 7.5 MG,
     Route: 048
     Dates: start: 20090101
  2. ENABLEX [Suspect]
     Dosage: 15 MG, UNK
     Route: 048
     Dates: start: 20090101, end: 20100101
  3. NAMENDA [Concomitant]
  4. EXELON [Concomitant]
  5. FLUOXETINE [Concomitant]
  6. XANAX [Concomitant]
  7. CIRCLEO [Concomitant]
  8. LOVASTATIN [Concomitant]
  9. MIACALCIN [Concomitant]
     Route: 045
  10. FROSEMIDE [Concomitant]
  11. TYLENOL (CAPLET) [Concomitant]
  12. VICODIN [Concomitant]
     Dosage: ONCE A WEEK

REACTIONS (3)
  - DEMENTIA [None]
  - DRUG INEFFECTIVE [None]
  - POLLAKIURIA [None]
